FAERS Safety Report 8782046 (Version 1)
Quarter: 2012Q4

REPORT INFORMATION
  Report Type: 
  Country: US (occurrence: US)
  Receive Date: 20120913
  Receipt Date: 20120913
  Transmission Date: 20130627
  Serious: Yes (Other)
  Sender: FDA-Public Use
  Company Number: US-PERRIGO-12US007738

PATIENT
  Age: 48 Year
  Sex: Female
  Weight: 87.53 kg

DRUGS (5)
  1. TIOCONAZOLE [Suspect]
     Indication: VULVOVAGINAL MYCOTIC INFECTION
     Dosage: 300 mg, single
     Route: 067
     Dates: start: 20120903, end: 20120903
  2. TOPAMAX [Concomitant]
     Indication: HEADACHE
     Dosage: UNK, UNK
     Route: 048
     Dates: start: 2011
  3. DIAZEPAM [Concomitant]
     Indication: ANXIETY
     Dosage: UNK, UNK
     Route: 048
     Dates: start: 2011
  4. NUVIGIL [Concomitant]
     Indication: ATTENTION DEFICIT/HYPERACTIVITY DISORDER
     Dosage: UNK, UNK
     Route: 048
     Dates: start: 2011
  5. TRIAMTERENE/HCTZ [Concomitant]
     Indication: HYPERTENSION
     Dosage: UNK, UNK
     Route: 048
     Dates: start: 2011

REACTIONS (8)
  - Hypersensitivity [Recovering/Resolving]
  - Vulvovaginal swelling [Recovering/Resolving]
  - Vulvovaginal pain [Recovering/Resolving]
  - Vulvovaginal pruritus [Recovering/Resolving]
  - Vulvovaginal discomfort [Recovering/Resolving]
  - Vulvovaginal burning sensation [Recovering/Resolving]
  - Vaginal odour [Unknown]
  - Vaginal discharge [Unknown]
